FAERS Safety Report 20500580 (Version 1)
Quarter: 2022Q1

REPORT INFORMATION
  Report Type: Spontaneous
  Country: US (occurrence: US)
  Receive Date: 20220222
  Receipt Date: 20220222
  Transmission Date: 20220423
  Serious: No
  Sender: FDA-Public Use
  Company Number: US-SA-SAC20220215000975

PATIENT
  Sex: Female

DRUGS (4)
  1. DUPIXENT [Suspect]
     Active Substance: DUPILUMAB
     Indication: Atrophic vulvovaginitis
     Dosage: 300 MG, QOW
     Route: 058
  2. FLUOXETINE [Concomitant]
     Active Substance: FLUOXETINE HYDROCHLORIDE
     Dosage: 40MG
  3. LISINOPRIL [Concomitant]
     Active Substance: LISINOPRIL
     Dosage: 40 MG
  4. VITAMINS NOS [Concomitant]
     Active Substance: VITAMINS

REACTIONS (2)
  - Limb discomfort [Unknown]
  - Product use in unapproved indication [Unknown]
